FAERS Safety Report 6283539-6 (Version None)
Quarter: 2009Q3

REPORT INFORMATION
  Report Type: 
  Country: None (occurrence: None)
  Receive Date: 20090724
  Receipt Date: 20090713
  Transmission Date: 20100115
  Serious: Yes (Hospitalization, Other)
  Sender: FDA-Public Use
  Company Number: DE-ELI_LILLY_AND_COMPANY-DE200904001327

PATIENT
  Sex: Female

DRUGS (3)
  1. FORTEO [Suspect]
     Indication: OSTEOPOROSIS
     Dosage: 20 UG, UNK
     Route: 058
     Dates: start: 20080627
  2. VITAMIN D [Concomitant]
  3. ANTIHYPERTENSIVES [Concomitant]

REACTIONS (5)
  - CHEST PAIN [None]
  - HYPERTENSION [None]
  - MENTAL IMPAIRMENT [None]
  - PERIPHERAL VASCULAR DISORDER [None]
  - SPINAL DISORDER [None]
